FAERS Safety Report 13300955 (Version 1)
Quarter: 2017Q1

REPORT INFORMATION
  Report Type: Spontaneous
  Country: FI (occurrence: FI)
  Receive Date: 20170307
  Receipt Date: 20170307
  Transmission Date: 20170428
  Serious: Yes (Life-Threatening)
  Sender: FDA-Public Use
  Company Number: FI-ACCORD-048773

PATIENT
  Age: 67 Year
  Sex: Male

DRUGS (3)
  1. DEXAMETHASONE. [Concomitant]
     Active Substance: DEXAMETHASONE
     Indication: PREMEDICATION
     Dosage: 1.5 MG/WEEK, IN THE MORNING
     Route: 048
     Dates: start: 20161214
  2. DIFLUCAN [Interacting]
     Active Substance: FLUCONAZOLE
     Indication: ORAL CANDIDIASIS
     Dosage: SINGLE DOSE
     Route: 048
     Dates: start: 20161227, end: 20161227
  3. DOCETAXEL ACCORD [Suspect]
     Active Substance: DOCETAXEL
     Indication: THYROID CANCER
     Dosage: STRENGTH: 20 MG/ML
     Route: 042
     Dates: start: 20161214, end: 20161228

REACTIONS (7)
  - Bronchospasm [Recovered/Resolved]
  - Off label use [Unknown]
  - Urinary incontinence [Unknown]
  - Hyperhidrosis [Unknown]
  - Pallor [Unknown]
  - Drug interaction [Unknown]
  - Salivary hypersecretion [Unknown]

NARRATIVE: CASE EVENT DATE: 20161228
